FAERS Safety Report 13803981 (Version 1)
Quarter: 2017Q3

REPORT INFORMATION
  Report Type: Spontaneous
  Country: BR (occurrence: BR)
  Receive Date: 20170728
  Receipt Date: 20170728
  Transmission Date: 20171127
  Serious: Yes (Other)
  Sender: FDA-Public Use
  Company Number: BR-ABBVIE-17P-020-2048492-00

PATIENT
  Sex: Male
  Weight: 65 kg

DRUGS (9)
  1. CALCIUM BICARBONATE [Concomitant]
     Active Substance: CALCIUM BICARBONATE
     Indication: PRODUCT USED FOR UNKNOWN INDICATION
     Route: 048
     Dates: start: 2009, end: 201704
  2. VITAMIN B COMPLEX [Concomitant]
     Active Substance: CYANOCOBALAMIN\DEXPANTHENOL\NIACINAMIDE\PYRIDOXINE HYDROCHLORIDE\RIBOFLAVIN 5^-PHOSPHATE SODIUM\THIAMINE HYDROCHLORIDE\VITAMIN B COMPLEX
     Indication: PRODUCT USED FOR UNKNOWN INDICATION
     Route: 048
     Dates: start: 2009
  3. CALCITRIOL. [Concomitant]
     Active Substance: CALCITRIOL
     Route: 048
     Dates: end: 201704
  4. CALCIJEX [Suspect]
     Active Substance: CALCITRIOL
     Indication: BONE DISORDER
     Dosage: FORM STRENGTH: 1 MICROGRAM/MILLILITER
     Route: 042
     Dates: end: 201609
  5. SODIUM BICARBONATE. [Suspect]
     Active Substance: SODIUM BICARBONATE
     Indication: PRODUCT USED FOR UNKNOWN INDICATION
     Route: 065
  6. FOLIC ACID. [Concomitant]
     Active Substance: FOLIC ACID
     Indication: MICTURITION DISORDER
     Route: 048
     Dates: start: 2009
  7. CALCIJEX [Suspect]
     Active Substance: CALCITRIOL
     Dosage: FORM STRENGTH: 1 MICROGRAM/MILLILITER
     Route: 042
     Dates: start: 201704
  8. RENAGEL [Concomitant]
     Active Substance: SEVELAMER HYDROCHLORIDE
     Indication: PRODUCT USED FOR UNKNOWN INDICATION
     Dates: start: 2009
  9. CALCITRIOL. [Concomitant]
     Active Substance: CALCITRIOL
     Indication: BONE DISORDER
     Route: 048
     Dates: start: 201609

REACTIONS (14)
  - Pain [Recovered/Resolved]
  - Tremor [Recovering/Resolving]
  - Pharyngeal disorder [Recovered/Resolved]
  - Osteoporosis [Unknown]
  - Bone disorder [Not Recovered/Not Resolved]
  - Bone atrophy [Not Recovered/Not Resolved]
  - Gait disturbance [Recovered/Resolved]
  - Blood parathyroid hormone increased [Recovering/Resolving]
  - Blood sodium increased [Unknown]
  - Weight decreased [Recovering/Resolving]
  - Anxiety [Recovering/Resolving]
  - Anaemia [Recovering/Resolving]
  - Feeling of despair [Unknown]
  - Arrhythmia [Unknown]

NARRATIVE: CASE EVENT DATE: 2009
